FAERS Safety Report 14592211 (Version 1)
Quarter: 2018Q1

REPORT INFORMATION
  Report Type: Spontaneous
  Country: JP (occurrence: JP)
  Receive Date: 20180302
  Receipt Date: 20180302
  Transmission Date: 20180509
  Serious: Yes (Life-Threatening, Hospitalization, Other)
  Sender: FDA-Public Use
  Company Number: JP-PFIZER INC-2017551384

PATIENT
  Age: 70 Year
  Sex: Male
  Weight: 69 kg

DRUGS (18)
  1. CAMPTO [Suspect]
     Active Substance: IRINOTECAN
     Indication: COLON CANCER
     Dosage: 281.3 MG, 1X/DAY
     Route: 041
     Dates: start: 20170922, end: 20170922
  2. CAMPTO [Suspect]
     Active Substance: IRINOTECAN
     Dosage: 281.3 MG, 1X/DAY
     Route: 041
     Dates: start: 20171124, end: 20171124
  3. ZALTRAP [Concomitant]
     Active Substance: ZIV-AFLIBERCEPT
     Dosage: 4 MG/KG, UNK
     Dates: start: 20170922, end: 20171208
  4. LEVOLEUCOVORIN CALCIUM. [Suspect]
     Active Substance: LEVOLEUCOVORIN CALCIUM
     Indication: COLON CANCER
     Dosage: 375 MG, 1X/DAY
     Route: 041
     Dates: start: 20170922, end: 20170922
  5. LEVOLEUCOVORIN CALCIUM. [Suspect]
     Active Substance: LEVOLEUCOVORIN CALCIUM
     Dosage: 375 MG, 1X/DAY
     Route: 041
     Dates: start: 20171110, end: 20171110
  6. SODIUM RABEPRAZOLE [Concomitant]
     Active Substance: RABEPRAZOLE SODIUM
     Dosage: UNK
  7. CAMPTO [Suspect]
     Active Substance: IRINOTECAN
     Dosage: 281.3 MG, 1X/DAY
     Route: 041
     Dates: start: 20171208, end: 20171208
  8. ALOXI [Concomitant]
     Active Substance: PALONOSETRON HYDROCHLORIDE
     Dosage: UNK
     Dates: start: 20170922, end: 20171208
  9. LEVOLEUCOVORIN CALCIUM. [Suspect]
     Active Substance: LEVOLEUCOVORIN CALCIUM
     Dosage: 375 MG, 1X/DAY
     Route: 041
     Dates: start: 20171013, end: 20171013
  10. DEXART [Concomitant]
     Active Substance: DEXAMETHASONE SODIUM PHOSPHATE
     Dosage: UNK
     Dates: start: 20170922, end: 20171208
  11. CAMPTO [Suspect]
     Active Substance: IRINOTECAN
     Dosage: 281.3 MG, 1X/DAY
     Route: 041
     Dates: start: 20171013, end: 20171013
  12. CAMPTO [Suspect]
     Active Substance: IRINOTECAN
     Dosage: 281.3 MG, 1X/DAY
     Route: 041
     Dates: start: 20171027, end: 20171027
  13. CAMPTO [Suspect]
     Active Substance: IRINOTECAN
     Dosage: 281.3 MG, 1X/DAY
     Route: 041
     Dates: start: 20171110, end: 20171110
  14. LEVOLEUCOVORIN CALCIUM. [Suspect]
     Active Substance: LEVOLEUCOVORIN CALCIUM
     Dosage: 375 MG, 1X/DAY
     Route: 041
     Dates: start: 20171027, end: 20171027
  15. 5-FU [Concomitant]
     Active Substance: FLUOROURACIL
     Dosage: 750 MG/BODY (400 MG/M2) BOLUS THEN 4500 MG/BODY/D1-2 (2400 MG/M2/D1-2) AS CONTINUOUS INFUSION
     Route: 040
     Dates: start: 20170922, end: 20171208
  16. RED CELLS M_A_P(IRRADIATED) [Concomitant]
     Dosage: UNK
  17. LEVOLEUCOVORIN CALCIUM. [Suspect]
     Active Substance: LEVOLEUCOVORIN CALCIUM
     Dosage: 375 MG, 1X/DAY
     Route: 041
     Dates: start: 20171124, end: 20171124
  18. LEVOLEUCOVORIN CALCIUM. [Suspect]
     Active Substance: LEVOLEUCOVORIN CALCIUM
     Dosage: 375 MG, 1X/DAY
     Route: 041
     Dates: start: 20171208, end: 20171208

REACTIONS (8)
  - Leukopenia [Recovered/Resolved]
  - Blood potassium decreased [Unknown]
  - Thrombocytopenia [Recovering/Resolving]
  - Blood creatinine increased [Recovered/Resolved]
  - Blood urea increased [Recovered/Resolved]
  - Febrile neutropenia [Recovered/Resolved]
  - Small intestinal perforation [Recovering/Resolving]
  - Peritonitis [Recovering/Resolving]

NARRATIVE: CASE EVENT DATE: 20171211
